FAERS Safety Report 5902205-7 (Version None)
Quarter: 2008Q3

REPORT INFORMATION
  Report Type: 
  Country: None (occurrence: None)
  Receive Date: 20080919
  Receipt Date: 20080731
  Transmission Date: 20090109
  Serious: No
  Sender: FDA-Public Use
  Company Number: US-WYE-H05336108

PATIENT
  Age: 35 Year
  Sex: Female
  Weight: 52.21 kg

DRUGS (4)
  1. PRISTIQ [Suspect]
     Indication: DEPRESSION
     Dosage: 50 MG 1X PER 1 DAY, ORAL
     Route: 048
     Dates: start: 20080701
  2. TOPAMAX [Concomitant]
  3. SYNTHROID [Concomitant]
  4. COUMADIN [Concomitant]

REACTIONS (4)
  - DIZZINESS [None]
  - LIP OEDEMA [None]
  - PARAESTHESIA [None]
  - RASH [None]
